FAERS Safety Report 5470127-4 (Version None)
Quarter: 2007Q3

REPORT INFORMATION
  Report Type: 
  Country: None (occurrence: None)
  Receive Date: 20070927
  Receipt Date: 20070917
  Transmission Date: 20080115
  Serious: Yes (Other)
  Sender: FDA-Public Use
  Company Number: US-PFIZER INC-2007078080

PATIENT
  Sex: Male
  Weight: 76.363 kg

DRUGS (1)
  1. LIPITOR [Suspect]
     Indication: BLOOD CHOLESTEROL INCREASED
     Dosage: DAILY DOSE:20MG
     Dates: start: 20010101, end: 20070913

REACTIONS (1)
  - DUODENAL ULCER HAEMORRHAGE [None]
